FAERS Safety Report 18959621 (Version 1)
Quarter: 2021Q1

REPORT INFORMATION
  Report Type: Spontaneous
  Country: US (occurrence: US)
  Receive Date: 20210302
  Receipt Date: 20210302
  Transmission Date: 20210420
  Serious: No
  Sender: FDA-Public Use
  Company Number: US-BAYER-2021-089115

PATIENT
  Age: 83 Year
  Sex: Female

DRUGS (3)
  1. MIRALAX [Suspect]
     Active Substance: POLYETHYLENE GLYCOL 3350
     Dosage: UNK
  2. MAGNESIUM CITRAT [Concomitant]
  3. LINZESS [Concomitant]
     Active Substance: LINACLOTIDE
     Dosage: 145 PG
     Dates: start: 20210129

REACTIONS (3)
  - Abdominal pain [Unknown]
  - Pollakiuria [Unknown]
  - Diarrhoea [Unknown]

NARRATIVE: CASE EVENT DATE: 20210212
